FAERS Safety Report 7125983-0 (Version None)
Quarter: 2010Q4

REPORT INFORMATION
  Report Type: 
  Country: None (occurrence: None)
  Receive Date: 20101129
  Receipt Date: 20101118
  Transmission Date: 20110411
  Serious: Yes (Other)
  Sender: FDA-Public Use
  Company Number: CA-ROCHE-743132

PATIENT
  Age: 60 Year
  Sex: Male
  Weight: 86 kg

DRUGS (7)
  1. TAMIFLU [Suspect]
     Route: 048
  2. CLONAZEPAM [Concomitant]
     Route: 048
  3. ENALAPRIL MALEATE [Concomitant]
  4. OLANZAPINE [Concomitant]
     Route: 048
  5. RAMIPRIL [Concomitant]
  6. TEGRETOL [Concomitant]
     Route: 048
  7. TOPAMAX [Concomitant]
     Route: 048

REACTIONS (4)
  - CONVULSION [None]
  - DIARRHOEA [None]
  - FALL [None]
  - GAIT DISTURBANCE [None]
